FAERS Safety Report 13876927 (Version 2)
Quarter: 2017Q3

REPORT INFORMATION
  Report Type: Report from Study
  Country: BR (occurrence: BR)
  Receive Date: 20170817
  Receipt Date: 20170904
  Transmission Date: 20171127
  Serious: Yes (Death, Hospitalization, Other)
  Sender: FDA-Public Use
  Company Number: BR-ACTELION-A-CH2017-158140

PATIENT
  Age: 68 Year
  Sex: Female

DRUGS (9)
  1. BOSENTANA [Suspect]
     Active Substance: BOSENTAN
     Indication: PULMONARY HYPERTENSION
     Dosage: 125 MG, BID
     Route: 048
     Dates: start: 2012, end: 20170731
  2. BENZATHINE PENICILLIN [Concomitant]
     Active Substance: PENICILLIN G BENZATHINE
     Indication: PROPHYLAXIS
     Dosage: UNK, Q1MONTH
  3. AMIODARONE [Concomitant]
     Active Substance: AMIODARONE
  4. SILDENAFIL. [Concomitant]
     Active Substance: SILDENAFIL
     Dosage: UNK
     Dates: start: 2012
  5. WARFARIN [Concomitant]
     Active Substance: WARFARIN
  6. RIOCIGUAT [Concomitant]
     Active Substance: RIOCIGUAT
  7. LOSARTAN. [Concomitant]
     Active Substance: LOSARTAN
  8. FUROSEMIDE. [Concomitant]
     Active Substance: FUROSEMIDE
  9. VENALOT [Concomitant]
     Active Substance: COUMARIN\TROXERUTIN

REACTIONS (6)
  - Dialysis [Unknown]
  - Urinary tract infection [Fatal]
  - Cardiac arrest [Fatal]
  - Renal failure [Fatal]
  - Condition aggravated [Unknown]
  - Pulmonary hypertension [Unknown]

NARRATIVE: CASE EVENT DATE: 20170728
